FAERS Safety Report 17913448 (Version 1)
Quarter: 2020Q2

REPORT INFORMATION
  Report Type: Spontaneous
  Country: US (occurrence: US)
  Receive Date: 20200618
  Receipt Date: 20200618
  Transmission Date: 20200714
  Serious: No
  Sender: FDA-Public Use
  Company Number: US-THERAPEUTICSMD-2020TMD02162

PATIENT
  Sex: Female
  Weight: 58.5 kg

DRUGS (1)
  1. IMVEXXY [Suspect]
     Active Substance: ESTRADIOL
     Indication: VULVOVAGINAL DRYNESS
     Dosage: 10 ?G, 2X/WEEK, IN THE MORNING
     Route: 067
     Dates: start: 202001, end: 20200504

REACTIONS (6)
  - Vaginal discharge [Recovered/Resolved]
  - Urinary tract infection [Recovered/Resolved]
  - Product residue present [Recovered/Resolved]
  - Off label use [Recovered/Resolved]
  - Vulvovaginal discomfort [Recovered/Resolved]
  - Drug ineffective for unapproved indication [Recovered/Resolved]

NARRATIVE: CASE EVENT DATE: 2020
